FAERS Safety Report 4331039-2 (Version None)
Quarter: 2004Q1

REPORT INFORMATION
  Report Type: 
  Country: None (occurrence: None)
  Receive Date: 20040331
  Receipt Date: 20040318
  Transmission Date: 20041129
  Serious: Yes (Hospitalization, Disabling)
  Sender: FDA-Public Use
  Company Number: US-JNJFOC-20040201102

PATIENT
  Age: 51 Year
  Sex: Female
  Weight: 55.3388 kg

DRUGS (8)
  1. INFLIXIMAB  (INFLIXIMAB, RECOMBINANT) LYOPHILIZED POWDER [Suspect]
     Indication: CROHN'S DISEASE
     Dosage: 5 , 10;  MG/KG, INTRAVENOUS
     Route: 042
     Dates: start: 20021230
  2. INFLIXIMAB  (INFLIXIMAB, RECOMBINANT) LYOPHILIZED POWDER [Suspect]
     Indication: CROHN'S DISEASE
     Dosage: 5 , 10;  MG/KG, INTRAVENOUS
     Route: 042
     Dates: start: 20030108
  3. INFLIXIMAB  (INFLIXIMAB, RECOMBINANT) LYOPHILIZED POWDER [Suspect]
     Indication: CROHN'S DISEASE
     Dosage: 5 , 10;  MG/KG, INTRAVENOUS
     Route: 042
     Dates: start: 20030122
  4. INFLIXIMAB  (INFLIXIMAB, RECOMBINANT) LYOPHILIZED POWDER [Suspect]
     Indication: CROHN'S DISEASE
     Dosage: 5 , 10;  MG/KG, INTRAVENOUS
     Route: 042
     Dates: start: 20030304
  5. INFLIXIMAB  (INFLIXIMAB, RECOMBINANT) LYOPHILIZED POWDER [Suspect]
     Indication: CROHN'S DISEASE
     Dosage: 5 , 10;  MG/KG, INTRAVENOUS
     Route: 042
     Dates: start: 20030512
  6. INFLIXIMAB  (INFLIXIMAB, RECOMBINANT) LYOPHILIZED POWDER [Suspect]
     Indication: CROHN'S DISEASE
     Dosage: 5 , 10;  MG/KG, INTRAVENOUS
     Route: 042
     Dates: start: 20030716
  7. INFLIXIMAB  (INFLIXIMAB, RECOMBINANT) LYOPHILIZED POWDER [Suspect]
     Indication: CROHN'S DISEASE
     Dosage: 5 , 10;  MG/KG, INTRAVENOUS
     Route: 042
     Dates: start: 20030924
  8. SULFASALAZINE [Concomitant]

REACTIONS (3)
  - ANAL FISTULA [None]
  - PAIN [None]
  - RECTAL HAEMORRHAGE [None]
